FAERS Safety Report 15873588 (Version 1)
Quarter: 2019Q1

REPORT INFORMATION
  Report Type: Other
  Country: US (occurrence: US)
  Receive Date: 20190126
  Receipt Date: 20190126
  Transmission Date: 20190417
  Serious: No
  Sender: FDA-Public Use
  Company Number: US-ACORDA-ACO_150319_2018

PATIENT
  Age: 61 Year
  Sex: Female

DRUGS (23)
  1. AMPYRA [Suspect]
     Active Substance: DALFAMPRIDINE
     Indication: MULTIPLE SCLEROSIS
     Dosage: 10 MG, Q 12 HRS (BID)
     Route: 048
     Dates: start: 20170705
  2. FUROSEMIDE (LASIX) 40 MG TABLET [Concomitant]
     Indication: PRODUCT USED FOR UNKNOWN INDICATION
     Dosage: 40 MG, QD PRN
     Route: 048
  3. INSULIN ASPART (NOVOLOG) 100 UNIT/ML SOPN PEN [Concomitant]
     Indication: PRODUCT USED FOR UNKNOWN INDICATION
     Dosage: IF GLUCOSE ABOVE 200=2 UNITS 250 - 299 = 4 UNITS 300-349 = 6 UNITS 350 - 349 = 8 UNITS 400 OR
     Route: 065
  4. MELOXICAM (MOBIC) 15 MG TABLET [Concomitant]
     Indication: PRODUCT USED FOR UNKNOWN INDICATION
     Dosage: 15 MG, QD
     Route: 048
  5. ASPIRIN 81 MG TABLET [Concomitant]
     Indication: PRODUCT USED FOR UNKNOWN INDICATION
     Dosage: 81 MG, QD
     Route: 048
  6. B COMPLEX VITAMINS (VITAMIN B COMPLEX PO) [Concomitant]
     Indication: PRODUCT USED FOR UNKNOWN INDICATION
     Dosage: 1 DF, QD
     Route: 048
  7. CHOLECALCIFEROL (VITAMIN D3) 5000 UNITS CAPS [Concomitant]
     Indication: PRODUCT USED FOR UNKNOWN INDICATION
     Dosage: 10000 IU, QD
     Route: 048
  8. IRON PO [Concomitant]
     Indication: PRODUCT USED FOR UNKNOWN INDICATION
     Dosage: UNK, QD
     Route: 048
  9. MENTHOL, TOPICAL ANALGESIC, 4% GEL [Concomitant]
     Indication: PRODUCT USED FOR UNKNOWN INDICATION
     Dosage: 4 %, TID PRN
     Route: 061
  10. METFORMIN (GLUCOPHAGE) 500 MG TABLET [Concomitant]
     Indication: PRODUCT USED FOR UNKNOWN INDICATION
     Dosage: 500 MG, BID
     Route: 065
  11. ONETOUCH VERIO STRIP [Concomitant]
     Indication: BLOOD GLUCOSE
     Dosage: USE 1 STRIP TO CHECK BLOOD SUGAR 4 TIMES A DAY
     Route: 065
  12. PLEGRIDY [Concomitant]
     Active Substance: PEGINTERFERON BETA-1A
     Indication: PRODUCT USED FOR UNKNOWN INDICATION
     Dosage: UNK
     Route: 065
  13. ROSUVASTATIN CALCIUM (CRESTOR PO) [Concomitant]
     Indication: PRODUCT USED FOR UNKNOWN INDICATION
     Route: 048
  14. TERIFLUNOMIDE (AUBAGIO) 14 MG TABS [Concomitant]
     Indication: PRODUCT USED FOR UNKNOWN INDICATION
     Dosage: 14 MG, QD
     Route: 048
  15. ATORVASTATIN (LIPITOR) 20 MG TABLET [Concomitant]
     Indication: PRODUCT USED FOR UNKNOWN INDICATION
     Dosage: 20 MG, QD
     Route: 048
  16. MULTIPLE VITAMINS-MINERALS (MULTIVITAMIN ADULT PO) [Concomitant]
     Indication: PRODUCT USED FOR UNKNOWN INDICATION
     Dosage: UNK, QD
     Route: 048
  17. BIOFLAVONOID PRODUCTS (VITAMIN C) CHEW [Concomitant]
     Indication: PRODUCT USED FOR UNKNOWN INDICATION
     Dosage: 1 DF, QD
     Route: 048
  18. COENZYME Q10 (CO Q 10) 10 MG CAPS [Concomitant]
     Indication: PRODUCT USED FOR UNKNOWN INDICATION
     Dosage: 10 MG, QD
     Route: 048
  19. LOSARTAN-HYDROCHLOROTHIAZIDE (HYZAAR) 100-25 MG PER TABLET [Concomitant]
     Indication: PRODUCT USED FOR UNKNOWN INDICATION
     Dosage: 100-25 MG, QD
     Route: 065
  20. U-300 INSULIN GLARGINE (TOUJEO) 300 UNIT/ML PEN [Concomitant]
     Indication: PRODUCT USED FOR UNKNOWN INDICATION
     Dosage: 18 IU, HS
     Route: 058
  21. DICLOFENAC (VOL TAREN) 1 % GEL [Concomitant]
     Indication: PAIN
     Dosage: 1%  TID PRN
     Route: 061
  22. POTASSIUM CHLORIDE (KLOR-CON PO) [Concomitant]
     Indication: PRODUCT USED FOR UNKNOWN INDICATION
     Dosage: UNK
     Route: 048
  23. VITAMIN E 100 UNIT CAPSULE [Concomitant]
     Indication: PRODUCT USED FOR UNKNOWN INDICATION
     Dosage: 100 IU, QD
     Route: 048

REACTIONS (6)
  - Loss of personal independence in daily activities [Unknown]
  - Depressed mood [Unknown]
  - Dizziness [Unknown]
  - Nausea [Unknown]
  - Device intolerance [Unknown]
  - Insomnia [Unknown]

NARRATIVE: CASE EVENT DATE: 20180521
